FAERS Safety Report 5988878-1 (Version None)
Quarter: 2008Q4

REPORT INFORMATION
  Report Type: 
  Country: None (occurrence: None)
  Receive Date: 20081208
  Receipt Date: 20081208
  Transmission Date: 20090506
  Serious: Yes (Death)
  Sender: FDA-Public Use
  Company Number: None

PATIENT
  Age: 88 Year
  Sex: Male
  Weight: 67.3 kg

DRUGS (11)
  1. OLANZAPINE [Suspect]
     Indication: DEMENTIA ALZHEIMER'S TYPE
     Dosage: 5MG PO BID
     Route: 048
     Dates: start: 20081103
  2. QUETIAPINE - SEE NARRATIVE FOR MORE DETAILED DOSING [Suspect]
     Dosage: 100MG PO QHS
     Route: 048
     Dates: start: 20080601
  3. ASPIRIN [Concomitant]
  4. DEPAKOTE [Concomitant]
  5. FERROUS SULFATE TAB [Concomitant]
  6. SIMVASTATIN [Concomitant]
  7. ARICEPT [Concomitant]
  8. NEXIUM [Concomitant]
  9. DIGOXIN [Concomitant]
  10. FOLIC ACID [Concomitant]
  11. HALDOL [Concomitant]

REACTIONS (7)
  - ANAEMIA [None]
  - IMMUNE SYSTEM DISORDER [None]
  - PLATELET COUNT DECREASED [None]
  - PNEUMONIA [None]
  - SEPSIS [None]
  - STAPHYLOCOCCAL INFECTION [None]
  - WHITE BLOOD CELL COUNT [None]
